FAERS Safety Report 12575700 (Version 3)
Quarter: 2016Q4

REPORT INFORMATION
  Report Type: Spontaneous
  Country: JP (occurrence: JP)
  Receive Date: 20160720
  Receipt Date: 20161216
  Transmission Date: 20170207
  Serious: Yes (Hospitalization, Other)
  Sender: FDA-Public Use
  Company Number: JP-BRISTOL-MYERS SQUIBB COMPANY-BMS-2016-059078

PATIENT
  Age: 79 Year
  Sex: Female

DRUGS (4)
  1. PLETAAL [Concomitant]
     Active Substance: CILOSTAZOL
     Indication: ATRIAL FIBRILLATION
     Route: 048
  2. ELIQUIS [Suspect]
     Active Substance: APIXABAN
     Indication: PRODUCT USED FOR UNKNOWN INDICATION
     Dosage: UNK
     Route: 048
  3. PIMENOL [Suspect]
     Active Substance: PIRMENOL HYDROCHLORIDE
     Indication: ATRIAL FIBRILLATION
     Dosage: 50 MG, BID
     Route: 048
     Dates: end: 20160704
  4. ELIQUIS [Suspect]
     Active Substance: APIXABAN
     Indication: CEREBROVASCULAR ACCIDENT PROPHYLAXIS
     Dosage: 2.5 MG, BID
     Route: 048
     Dates: start: 20160531, end: 20160704

REACTIONS (2)
  - Sinus node dysfunction [Recovered/Resolved]
  - Herpes zoster [Recovered/Resolved]

NARRATIVE: CASE EVENT DATE: 20160617
